FAERS Safety Report 4513040-9 (Version None)
Quarter: 2004Q4

REPORT INFORMATION
  Report Type: 
  Country: None (occurrence: None)
  Receive Date: 20041124
  Receipt Date: 20041124
  Transmission Date: 20050328
  Serious: Yes (Other)
  Sender: FDA-Public Use
  Company Number: None

PATIENT
  Sex: Female

DRUGS (2)
  1. OVIDE [Suspect]
     Dates: start: 20041002, end: 20041002
  2. LINDANE [Suspect]

REACTIONS (4)
  - ALOPECIA [None]
  - APPLICATION SITE REACTION [None]
  - SWELLING [None]
  - THERMAL BURN [None]
